FAERS Safety Report 24849347 (Version 1)
Quarter: 2025Q1

REPORT INFORMATION
  Report Type: Spontaneous
  Country: IR (occurrence: IR)
  Receive Date: 20250116
  Receipt Date: 20250116
  Transmission Date: 20250408
  Serious: Yes (Death, Hospitalization, Other)
  Sender: APOTEX
  Company Number: IR-APOTEX-2025AP001087

PATIENT
  Age: 39 Year
  Sex: Female

DRUGS (2)
  1. ALPRAZOLAM [Suspect]
     Active Substance: ALPRAZOLAM
     Indication: Product used for unknown indication
     Route: 065
  2. SERTRALINE [Concomitant]
     Active Substance: SERTRALINE HYDROCHLORIDE
     Indication: Product used for unknown indication
     Route: 065

REACTIONS (6)
  - Brain death [Fatal]
  - Toxicity to various agents [Fatal]
  - Brain oedema [Fatal]
  - Pneumonia aspiration [Fatal]
  - Cyanosis [Fatal]
  - Drug screen positive [Fatal]
